FAERS Safety Report 9567310 (Version 2)
Quarter: 2013Q3

REPORT INFORMATION
  Report Type: Spontaneous
  Country: US (occurrence: US)
  Receive Date: 20130930
  Receipt Date: 20130930
  Transmission Date: 20140515
  Serious: No
  Sender: FDA-Public Use
  Company Number: US-AMGEN-USASP2012061939

PATIENT
  Age: 42 Year
  Sex: Female
  Weight: 105.22 kg

DRUGS (8)
  1. ENBREL [Suspect]
     Indication: PSORIATIC ARTHROPATHY
     Dosage: 25 MG, 2 TIMES/WK
  2. UROCIT K [Concomitant]
     Dosage: 5 TABLET
     Route: 048
  3. ALLEGRA [Concomitant]
     Dosage: 30 MG, UNK
     Route: 048
  4. FLONASE [Concomitant]
     Dosage: 0.05 % IN
  5. VENTOLIN HFA [Concomitant]
     Dosage: UNK
  6. NASONEX [Concomitant]
     Dosage: UNK
  7. ZYRTEC [Concomitant]
     Dosage: UNK
  8. MIDRIN                             /00450801/ [Concomitant]
     Dosage: UNK

REACTIONS (2)
  - Nasopharyngitis [Unknown]
  - Upper respiratory tract infection [Unknown]
